FAERS Safety Report 13665901 (Version 2)
Quarter: 2017Q3

REPORT INFORMATION
  Report Type: Report from Study
  Country: US (occurrence: BR)
  Receive Date: 20170619
  Receipt Date: 20170726
  Transmission Date: 20171127
  Serious: Yes (Other)
  Sender: FDA-Public Use
  Company Number: US-SUNOVION-2017SUN002537

PATIENT
  Sex: Male
  Weight: 84 kg

DRUGS (2)
  1. INDACATEROL AND GLYCOPYRROLATE [Suspect]
     Active Substance: GLYCOPYRROLATE\INDACATEROL MALEATE
     Indication: DYSPNOEA
     Dosage: 1 DF (GLYCOPYRRONIUM BROMIDE 50 UG/ INDACATEROL 110 UG), QD (STARTED 45 DAYS AGO)
     Route: 055
  2. OXIMAX [Concomitant]
     Active Substance: MOMETASONE FUROATE
     Dosage: UNK

REACTIONS (12)
  - Tuberculosis [Unknown]
  - Weight decreased [Unknown]
  - Saliva altered [Unknown]
  - Weight increased [Unknown]
  - Product use in unapproved indication [Unknown]
  - Lung disorder [Unknown]
  - Dysphonia [Unknown]
  - Oropharyngeal pain [Unknown]
  - Throat irritation [Not Recovered/Not Resolved]
  - Influenza [Unknown]
  - Cough [Unknown]
  - Fear [Unknown]
